FAERS Safety Report 8814251 (Version 2)
Quarter: 2013Q1

REPORT INFORMATION
  Report Type: Spontaneous
  Country: FR (occurrence: None)
  Receive Date: 20120925
  Receipt Date: 20121015
  Transmission Date: 20140127
  Serious: Yes (Hospitalization)
  Sender: FDA-Public Use
  Company Number: SP06081

PATIENT
  Age: 64 Year
  Sex: Male

DRUGS (2)
  1. OSMOPREP [Suspect]
     Indication: BOWEL PREPARATION
     Route: 048
     Dates: start: 20111205, end: 20111205
  2. PRAVASTATIN [Concomitant]

REACTIONS (7)
  - Nausea [None]
  - Vomiting [None]
  - Loss of consciousness [None]
  - Blood sodium decreased [None]
  - Blood potassium decreased [None]
  - Blood chloride decreased [None]
  - Blood bicarbonate decreased [None]
